FAERS Safety Report 21114263 (Version 2)
Quarter: 2022Q3

REPORT INFORMATION
  Report Type: Report from Study
  Country: US (occurrence: US)
  Receive Date: 20220721
  Receipt Date: 20220907
  Transmission Date: 20221027
  Serious: Yes (Hospitalization)
  Sender: FDA-Public Use
  Company Number: US-BAUSCH-BL-2022-018331

PATIENT
  Age: 43 Year
  Sex: Female

DRUGS (1)
  1. XIFAXAN [Suspect]
     Active Substance: RIFAXIMIN
     Indication: Hepatic encephalopathy
     Route: 048

REACTIONS (4)
  - Seizure [Unknown]
  - Pneumonia [Unknown]
  - Pulmonary oedema [Unknown]
  - Aphasia [Unknown]

NARRATIVE: CASE EVENT DATE: 20220101
